FAERS Safety Report 4581562-0 (Version None)
Quarter: 2005Q1

REPORT INFORMATION
  Report Type: 
  Country: None (occurrence: None)
  Receive Date: 20050214
  Receipt Date: 20041117
  Transmission Date: 20050727
  Serious: Yes (Hospitalization, Other)
  Sender: FDA-Public Use
  Company Number: US-GLAXOSMITHKLINE-A0534335A

PATIENT
  Age: 26 Year
  Sex: Female
  Weight: 77.3 kg

DRUGS (2)
  1. LAMICTAL [Suspect]
     Indication: BIPOLAR DISORDER
     Route: 048
  2. TRIPHASIL-21 [Concomitant]

REACTIONS (4)
  - RASH [None]
  - RASH PUSTULAR [None]
  - RASH VESICULAR [None]
  - STEVENS-JOHNSON SYNDROME [None]
